FAERS Safety Report 17493873 (Version 1)
Quarter: 2020Q1

REPORT INFORMATION
  Report Type: Spontaneous
  Country: US (occurrence: US)
  Receive Date: 20200304
  Receipt Date: 20200304
  Transmission Date: 20200409
  Serious: Yes (Death, Hospitalization)
  Sender: FDA-Public Use
  Company Number: US-TEVA-2020-US-1193370

PATIENT
  Age: 78 Year
  Sex: Male

DRUGS (7)
  1. LIPID EMULSION 20% [Concomitant]
     Active Substance: EGG PHOSPHOLIPIDS\SAFFLOWER OIL\SOYBEAN OIL
     Indication: CARDIAC ARREST
     Dosage: FOLLOWED BY 0.5 ML/KG OVER 1H
     Route: 042
  2. CALCIUM [Concomitant]
     Active Substance: CALCIUM
     Route: 065
  3. SODIUM BICARBONATE. [Concomitant]
     Active Substance: SODIUM BICARBONATE
     Indication: CARDIAC ARREST
     Route: 065
  4. NOREPINEPHRINE. [Suspect]
     Active Substance: NOREPINEPHRINE
     Indication: HYPOTENSION
     Route: 065
  5. DEXTROSE-10 [Suspect]
     Active Substance: DEXTROSE
     Indication: HYPOGLYCAEMIA
     Dosage: DRUG NOT ADMINISTERED
     Route: 065
  6. LIDOCAINE. [Suspect]
     Active Substance: LIDOCAINE
     Indication: HYPOGLYCAEMIA
     Dosage: MEDICATION ERROR
     Route: 042
  7. LIPID EMULSION 20% [Concomitant]
     Active Substance: EGG PHOSPHOLIPIDS\SAFFLOWER OIL\SOYBEAN OIL
     Indication: CARDIAC ARREST
     Route: 042

REACTIONS (6)
  - Cardiac tamponade [Fatal]
  - Ventricular tachycardia [Fatal]
  - Drug ineffective [Unknown]
  - Shock [Fatal]
  - Wrong product administered [Unknown]
  - Cardiac arrest [Fatal]
